FAERS Safety Report 16561395 (Version 1)
Quarter: 2019Q3

REPORT INFORMATION
  Report Type: Spontaneous
  Country: US (occurrence: US)
  Receive Date: 20190711
  Receipt Date: 20190711
  Transmission Date: 20191004
  Serious: Yes (Other)
  Sender: FDA-Public Use
  Company Number: US-LEITERS-2070684

PATIENT

DRUGS (2)
  1. MOXIFLOXACIN 1 MG/ML [Suspect]
     Active Substance: MOXIFLOXACIN
     Indication: ADJUVANT THERAPY
     Route: 047
     Dates: start: 20190612, end: 20190612
  2. MOXIFLOXACIN 1 MG/ML [Suspect]
     Active Substance: MOXIFLOXACIN
     Indication: CATARACT OPERATION
     Route: 047
     Dates: start: 20190612, end: 20190612

REACTIONS (1)
  - Toxic anterior segment syndrome [Recovering/Resolving]

NARRATIVE: CASE EVENT DATE: 20190616
